FAERS Safety Report 6724120-1 (Version None)
Quarter: 2010Q2

REPORT INFORMATION
  Report Type: 
  Country: None (occurrence: None)
  Receive Date: 20100513
  Receipt Date: 20100510
  Transmission Date: 20101027
  Serious: Yes (Hospitalization)
  Sender: FDA-Public Use
  Company Number: DE-TEVA-220946ISR

PATIENT
  Sex: Female
  Weight: 57 kg

DRUGS (12)
  1. IRINOTECAN [Suspect]
     Indication: COLORECTAL CANCER METASTATIC
     Route: 042
     Dates: start: 20091026
  2. IRINOTECAN [Concomitant]
  3. FLUOROURACIL [Suspect]
     Indication: COLORECTAL CANCER METASTATIC
     Route: 042
     Dates: start: 20091026
  4. FLUOROURACIL [Suspect]
     Route: 042
     Dates: start: 20091026
  5. FOLINIC ACID [Suspect]
     Indication: COLORECTAL CANCER METASTATIC
     Route: 042
     Dates: start: 20091026
  6. CETUXIMAB [Suspect]
     Indication: COLORECTAL CANCER METASTATIC
     Route: 042
     Dates: start: 20091026
  7. ONDANSETRON HYDROCHLORIDE [Concomitant]
     Dates: start: 20091026, end: 20091221
  8. APREPITANT [Concomitant]
     Dates: start: 20091026, end: 20091221
  9. DEXAMETHASONE PHOSPHATE [Concomitant]
     Dates: start: 20091026, end: 20091221
  10. RANITIDINE HYDROCHLORIDE [Concomitant]
     Dates: start: 20091026, end: 20091221
  11. DIMETINDENE MALEATE [Concomitant]
     Dates: start: 20091026, end: 20091221
  12. MAGNESIUM [Concomitant]

REACTIONS (1)
  - PNEUMOCYSTIS JIROVECI PNEUMONIA [None]
